FAERS Safety Report 6402329-4 (Version None)
Quarter: 2009Q4

REPORT INFORMATION
  Report Type: 
  Country: None (occurrence: None)
  Receive Date: 20091015
  Receipt Date: 20091014
  Transmission Date: 20100525
  Serious: Yes (Death)
  Sender: FDA-Public Use
  Company Number: PHHY2009BR44389

PATIENT
  Sex: Female

DRUGS (2)
  1. EXFORGE [Suspect]
     Dosage: 160/5 MG, UNK
  2. DIOVAN AMLO FIX [Suspect]
     Dosage: 160/5 MG, UNK

REACTIONS (1)
  - DEATH [None]
